FAERS Safety Report 6905520-3 (Version None)
Quarter: 2010Q3

REPORT INFORMATION
  Report Type: 
  Country: None (occurrence: None)
  Receive Date: 20100804
  Receipt Date: 20100726
  Transmission Date: 20110219
  Serious: Yes (Other)
  Sender: FDA-Public Use
  Company Number: CA-PFIZER INC-2010093951

PATIENT
  Age: 19 Year
  Sex: Male

DRUGS (3)
  1. ZELDOX [Suspect]
     Dosage: 40 MG, 2X/DAY
     Dates: start: 20100501
  2. ZYPREXA [Concomitant]
     Dosage: UNK
  3. KEMADRIN [Concomitant]
     Dosage: 5 UNK, 2X/DAY

REACTIONS (1)
  - BLINDNESS [None]
